FAERS Safety Report 21609454 (Version 1)
Quarter: 2022Q4

REPORT INFORMATION
  Report Type: Spontaneous
  Country: FR (occurrence: FR)
  Receive Date: 20221117
  Receipt Date: 20221117
  Transmission Date: 20230113
  Serious: Yes (Other)
  Sender: FDA-Public Use
  Company Number: FR-ELI_LILLY_AND_COMPANY-FR202211004539

PATIENT
  Age: 52 Year
  Sex: Male

DRUGS (2)
  1. PEMETREXED [Suspect]
     Active Substance: PEMETREXED
     Indication: Product used for unknown indication
     Dosage: UNK, CYCLICAL
     Route: 065
     Dates: start: 201511
  2. CARBOPLATIN [Suspect]
     Active Substance: CARBOPLATIN
     Indication: Product used for unknown indication
     Dosage: UNK, CYCLICAL
     Route: 065
     Dates: start: 201511

REACTIONS (3)
  - Systemic inflammatory response syndrome [Recovered/Resolved]
  - Malignant neoplasm progression [Recovered/Resolved]
  - Anaemia [Unknown]
